FAERS Safety Report 23774348 (Version 3)
Quarter: 2024Q4

REPORT INFORMATION
  Report Type: Spontaneous
  Country: JP (occurrence: JP)
  Receive Date: 20240423
  Receipt Date: 20241023
  Transmission Date: 20250115
  Serious: Yes (Hospitalization, Other)
  Sender: ALEXION PHARMACEUTICALS
  Company Number: 2024A089442

PATIENT
  Age: 64 Year
  Weight: 65 kg

DRUGS (48)
  1. LYNPARZA [Suspect]
     Active Substance: OLAPARIB
     Indication: Ovarian cancer recurrent
     Dosage: DOSE UNKNOWN
  2. LYNPARZA [Suspect]
     Active Substance: OLAPARIB
     Dosage: DOSE UNKNOWN
  3. LYNPARZA [Suspect]
     Active Substance: OLAPARIB
     Dosage: DOSE UNKNOWN
  4. LYNPARZA [Suspect]
     Active Substance: OLAPARIB
     Dosage: DOSE UNKNOWN
  5. PACLITAXEL [Suspect]
     Active Substance: PACLITAXEL
     Indication: Ovarian cancer recurrent
     Dosage: DOSE UNKNOWN
     Route: 065
  6. PACLITAXEL [Suspect]
     Active Substance: PACLITAXEL
     Indication: Ovarian cancer
     Dosage: DOSE UNKNOWN
  7. PACLITAXEL [Suspect]
     Active Substance: PACLITAXEL
     Dosage: DOSE UNKNOWN
     Route: 065
  8. PACLITAXEL [Suspect]
     Active Substance: PACLITAXEL
     Dosage: DOSE UNKNOWN
  9. PACLITAXEL [Suspect]
     Active Substance: PACLITAXEL
     Dosage: DOSE UNKNOWN
     Route: 065
  10. PACLITAXEL [Suspect]
     Active Substance: PACLITAXEL
     Dosage: DOSE UNKNOWN
  11. CARBOPLATIN [Suspect]
     Active Substance: CARBOPLATIN
     Indication: Ovarian cancer
     Dosage: DOSE UNKNOWN
     Route: 065
  12. CARBOPLATIN [Suspect]
     Active Substance: CARBOPLATIN
     Indication: Ovarian cancer recurrent
     Dosage: DOSE UNKNOWN
  13. CARBOPLATIN [Suspect]
     Active Substance: CARBOPLATIN
     Dosage: DOSE UNKNOWN
     Route: 065
  14. CARBOPLATIN [Suspect]
     Active Substance: CARBOPLATIN
     Dosage: DOSE UNKNOWN
  15. CARBOPLATIN [Suspect]
     Active Substance: CARBOPLATIN
     Dosage: DOSE UNKNOWN
     Route: 065
  16. CARBOPLATIN [Suspect]
     Active Substance: CARBOPLATIN
     Dosage: DOSE UNKNOWN
  17. NEDAPLATIN [Suspect]
     Active Substance: NEDAPLATIN
     Indication: Ovarian cancer recurrent
     Dosage: DOSE UNKNOWN
     Route: 065
  18. NEDAPLATIN [Suspect]
     Active Substance: NEDAPLATIN
     Dosage: DOSE UNKNOWN
  19. NEDAPLATIN [Suspect]
     Active Substance: NEDAPLATIN
     Dosage: DOSE UNKNOWN
     Route: 065
  20. NEDAPLATIN [Suspect]
     Active Substance: NEDAPLATIN
     Dosage: DOSE UNKNOWN
  21. METOCLOPRAMIDE [Concomitant]
     Active Substance: METOCLOPRAMIDE
     Dosage: AS REQUIRED
  22. METOCLOPRAMIDE [Concomitant]
     Active Substance: METOCLOPRAMIDE
     Dosage: AS REQUIRED
  23. METOCLOPRAMIDE [Concomitant]
     Active Substance: METOCLOPRAMIDE
     Dosage: AS REQUIRED
  24. METOCLOPRAMIDE [Concomitant]
     Active Substance: METOCLOPRAMIDE
     Dosage: AS REQUIRED
  25. WAPLON [Concomitant]
     Dosage: AS REQUIRED
  26. WAPLON [Concomitant]
     Dosage: AS REQUIRED
  27. LOXOPROFEN SODIUM [Concomitant]
     Active Substance: LOXOPROFEN SODIUM
     Dosage: AS REQUIRED
  28. LOXOPROFEN SODIUM [Concomitant]
     Active Substance: LOXOPROFEN SODIUM
     Dosage: AS REQUIRED
  29. LOXOPROFEN SODIUM [Concomitant]
     Active Substance: LOXOPROFEN SODIUM
     Dosage: AS REQUIRED
  30. LOXOPROFEN SODIUM [Concomitant]
     Active Substance: LOXOPROFEN SODIUM
     Dosage: AS REQUIRED
  31. REBAMIPIDE [Concomitant]
     Active Substance: REBAMIPIDE
     Dosage: AS REQUIRED
  32. REBAMIPIDE [Concomitant]
     Active Substance: REBAMIPIDE
     Dosage: AS REQUIRED
  33. REBAMIPIDE [Concomitant]
     Active Substance: REBAMIPIDE
     Dosage: AS REQUIRED
  34. REBAMIPIDE [Concomitant]
     Active Substance: REBAMIPIDE
     Dosage: AS REQUIRED
  35. RINDERON [Concomitant]
     Dosage: AS REQUIRED
  36. RINDERON [Concomitant]
     Dosage: AS REQUIRED
  37. RINDERON [Concomitant]
     Dosage: AS REQUIRED
  38. RINDERON [Concomitant]
     Dosage: AS REQUIRED
  39. KETOPROFEN [Concomitant]
     Active Substance: KETOPROFEN
     Dosage: AS REQUIRED
  40. KETOPROFEN [Concomitant]
     Active Substance: KETOPROFEN
     Dosage: AS REQUIRED
  41. CLARITIN [Concomitant]
     Active Substance: LORATADINE
     Dosage: 10 MILLIGRAM, QD
  42. CLARITIN [Concomitant]
     Active Substance: LORATADINE
     Dosage: 10 MILLIGRAM, QD
  43. CLARITIN [Concomitant]
     Active Substance: LORATADINE
     Dosage: 10 MILLIGRAM, QD
  44. CLARITIN [Concomitant]
     Active Substance: LORATADINE
     Dosage: 10 MILLIGRAM, QD
  45. TRANEXAMIC ACID [Concomitant]
     Active Substance: TRANEXAMIC ACID
     Indication: Seasonal allergy
     Dosage: 250 MILLIGRAM, TID
  46. TRANEXAMIC ACID [Concomitant]
     Active Substance: TRANEXAMIC ACID
     Dosage: 250 MILLIGRAM, TID
  47. TRANEXAMIC ACID [Concomitant]
     Active Substance: TRANEXAMIC ACID
     Dosage: 250 MILLIGRAM, TID
  48. TRANEXAMIC ACID [Concomitant]
     Active Substance: TRANEXAMIC ACID
     Dosage: 250 MILLIGRAM, TID

REACTIONS (2)
  - Myelodysplastic syndrome [Not Recovered/Not Resolved]
  - Leukaemia [Not Recovered/Not Resolved]
